FAERS Safety Report 16296724 (Version 1)
Quarter: 2019Q2

REPORT INFORMATION
  Report Type: Spontaneous
  Country: FR (occurrence: FR)
  Receive Date: 20190510
  Receipt Date: 20190510
  Transmission Date: 20190711
  Serious: Yes (Hospitalization, Other)
  Sender: FDA-Public Use
  Company Number: FR-PFIZER INC-2019196266

PATIENT
  Age: 89 Year
  Sex: Male

DRUGS (2)
  1. AUGMENTIN [Suspect]
     Active Substance: AMOXICILLIN\CLAVULANATE POTASSIUM
     Indication: LUNG INFECTION
     Dosage: 3 G, 1X/DAY
     Route: 048
     Dates: start: 20190303, end: 20190305
  2. CORDARONE [Suspect]
     Active Substance: AMIODARONE HYDROCHLORIDE
     Indication: ATRIAL FIBRILLATION
     Dosage: 600 MG, QD
     Route: 048
     Dates: start: 20190304, end: 20190307

REACTIONS (4)
  - Factor V deficiency [Recovering/Resolving]
  - Hepatocellular injury [Recovering/Resolving]
  - Coagulopathy [Recovering/Resolving]
  - Hepatocellular injury [Recovering/Resolving]

NARRATIVE: CASE EVENT DATE: 20190306
